FAERS Safety Report 8426764-8 (Version None)
Quarter: 2012Q2

REPORT INFORMATION
  Report Type: 
  Country: None (occurrence: None)
  Receive Date: 20120611
  Receipt Date: 20120604
  Transmission Date: 20120825
  Serious: Yes (Death)
  Sender: FDA-Public Use
  Company Number: PHHY2012US049377

PATIENT

DRUGS (7)
  1. RIFAMPIN [Suspect]
     Indication: OSTEOMYELITIS CHRONIC
  2. DAPTOMYCIN [Suspect]
     Indication: OSTEOMYELITIS CHRONIC
  3. RIFAMPIN [Suspect]
     Indication: BACTERAEMIA
  4. SULFAMETHOXAZOLE AND TRIMETHOPRIM [Suspect]
     Indication: OSTEOMYELITIS CHRONIC
  5. SULFAMETHOXAZOLE AND TRIMETHOPRIM [Suspect]
     Indication: BACTERAEMIA
  6. DAPTOMYCIN [Suspect]
     Indication: BACTERAEMIA
  7. DAPTOMYCIN [Suspect]

REACTIONS (2)
  - BLOOD CREATININE INCREASED [None]
  - DEATH [None]
